FAERS Safety Report 14009176 (Version 1)
Quarter: 2017Q3

REPORT INFORMATION
  Report Type: Spontaneous
  Country: IT (occurrence: IT)
  Receive Date: 20170925
  Receipt Date: 20170925
  Transmission Date: 20171128
  Serious: Yes (Hospitalization)
  Sender: FDA-Public Use
  Company Number: IT-SA-2017SA174900

PATIENT
  Age: 78 Year
  Sex: Female

DRUGS (10)
  1. LANOXIN [Concomitant]
     Active Substance: DIGOXIN
     Route: 065
  2. ISOPTIN [Concomitant]
     Active Substance: VERAPAMIL HYDROCHLORIDE
     Route: 065
  3. GLUCOPHAGE [Concomitant]
     Active Substance: METFORMIN HYDROCHLORIDE
     Route: 065
  4. ENAPREN [Concomitant]
     Active Substance: ENALAPRIL MALEATE
     Route: 048
  5. KANRENOL [Concomitant]
     Active Substance: CANRENOATE POTASSIUM
     Route: 065
  6. TORVAST [Concomitant]
     Active Substance: ATORVASTATIN
     Route: 065
  7. COUMADIN [Suspect]
     Active Substance: WARFARIN SODIUM
     Indication: ATRIAL FIBRILLATION
     Route: 048
     Dates: start: 20160101, end: 20161006
  8. LASIX [Concomitant]
     Active Substance: FUROSEMIDE
     Route: 065
  9. AMARYL [Concomitant]
     Active Substance: GLIMEPIRIDE
     Route: 065
  10. PLAVIX [Suspect]
     Active Substance: CLOPIDOGREL BISULFATE
     Indication: ATRIAL FIBRILLATION
     Route: 048
     Dates: start: 20160101, end: 20161006

REACTIONS (2)
  - Melaena [Unknown]
  - Presyncope [Unknown]

NARRATIVE: CASE EVENT DATE: 20161004
